FAERS Safety Report 4509091-0 (Version None)
Quarter: 2004Q4

REPORT INFORMATION
  Report Type: 
  Country: None (occurrence: None)
  Receive Date: 20041025
  Receipt Date: 20040723
  Transmission Date: 20050328
  Serious: Yes (Other)
  Sender: FDA-Public Use
  Company Number: US-JNJFOC-20040706467

PATIENT
  Age: 72 Year
  Sex: 0
  Weight: 68.0396 kg

DRUGS (6)
  1. INFLIXIMAB (INFLIXIMAB, RECOMBINANT) LYOPHILIZED POWDER [Suspect]
     Indication: RHEUMATOID ARTHRITIS
     Dosage: , 1 IN 8 WEEK, INTRAVENOUS
     Route: 042
     Dates: start: 20030211, end: 20031001
  2. PREVACID [Concomitant]
  3. TYLENOL [Concomitant]
  4. BEXTRA [Concomitant]
  5. FOLIC ACID [Concomitant]
  6. MULTIVITAMIN (MULTIVITAMINS) [Concomitant]

REACTIONS (1)
  - DYSPNOEA [None]
